FAERS Safety Report 19866727 (Version 2)
Quarter: 2022Q4

REPORT INFORMATION
  Report Type: Spontaneous
  Country: US (occurrence: US)
  Receive Date: 20210922
  Receipt Date: 20221017
  Transmission Date: 20230113
  Serious: No
  Sender: FDA-Public Use
  Company Number: US-CELLTRION INC.-2020US034744

PATIENT

DRUGS (4)
  1. INFLECTRA [Suspect]
     Active Substance: INFLIXIMAB-DYYB
     Indication: Crohn^s disease
     Dosage: UNKOWN DOSE. INFUSED IN IV OVER ROUGHLY 2 1/2 - 2 HR 45 MINUTES EVERY 8 WEEKS
     Route: 042
     Dates: start: 202007
  2. INFLECTRA [Suspect]
     Active Substance: INFLIXIMAB-DYYB
     Indication: Colitis ulcerative
  3. TYLENOL [Concomitant]
     Active Substance: ACETAMINOPHEN
     Indication: Pain prophylaxis
     Dosage: UNK (MAYBE 1,000 MG BUT UNKNOWN), RECEIVE PRIOR INFUSION
  4. IBUPROFEN [Concomitant]
     Active Substance: IBUPROFEN
     Indication: Allergy prophylaxis
     Dosage: 1 TABLET (UNKNOWN DOSE) RECEIVE PRIOR INFUSION

REACTIONS (2)
  - Product dose omission issue [Not Recovered/Not Resolved]
  - Incorrect product administration duration [Unknown]

NARRATIVE: CASE EVENT DATE: 20200801
